FAERS Safety Report 4705559-2 (Version None)
Quarter: 2005Q2

REPORT INFORMATION
  Report Type: 
  Country: None (occurrence: None)
  Receive Date: 20050629
  Receipt Date: 20041103
  Transmission Date: 20051028
  Serious: Yes (Death, Life-Threatening, Disabling, Other)
  Sender: FDA-Public Use
  Company Number: 200420359GDDC

PATIENT
  Age: 80 Year
  Sex: Male
  Weight: 75 kg

DRUGS (7)
  1. HEPARIN SODIUM [Suspect]
     Indication: MYOCARDIAL INFARCTION
     Dosage: 4000 U ONCE IVB
     Route: 040
     Dates: start: 20041011, end: 20041011
  2. HEPARIN SODIUM [Suspect]
     Indication: MYOCARDIAL INFARCTION
     Dosage: 720 U CONT IVF
     Route: 042
     Dates: start: 20041011, end: 20041011
  3. ASPIRIN [Suspect]
     Indication: MYOCARDIAL INFARCTION
     Dosage: 500 MG/DAY IV
     Route: 042
     Dates: start: 20041011, end: 20041011
  4. STREPTOKINASE SOLUTION FOR INFUSION [Suspect]
     Indication: MYOCARDIAL INFARCTION
     Dosage: 1.2 MIU/DAY IV
     Route: 042
     Dates: start: 20041011, end: 20041011
  5. METOPROLOL [Suspect]
     Indication: MYOCARDIAL INFARCTION
     Dosage: 2 MG IV
     Route: 042
     Dates: start: 20041011, end: 20041011
  6. FUROSEMIDE [Suspect]
     Indication: CARDIAC FAILURE
     Dosage: 200 MG IV
     Route: 042
     Dates: start: 20041011, end: 20041011
  7. DIAZEPAM [Concomitant]

REACTIONS (12)
  - ATHEROSCLEROSIS [None]
  - CARDIAC MURMUR [None]
  - CARDIAC TAMPONADE [None]
  - CARDIOGENIC SHOCK [None]
  - CONDITION AGGRAVATED [None]
  - EPILEPSY [None]
  - HYPOTENSION [None]
  - INTERVENTRICULAR SEPTUM RUPTURE [None]
  - MYOCARDIAL RUPTURE [None]
  - PERICARDIAL HAEMORRHAGE [None]
  - PULMONARY OEDEMA [None]
  - TACHYCARDIA [None]
